FAERS Safety Report 6597113-5 (Version None)
Quarter: 2010Q1

REPORT INFORMATION
  Report Type: 
  Country: None (occurrence: None)
  Receive Date: 20100223
  Receipt Date: 20100210
  Transmission Date: 20100710
  Serious: Yes (Death)
  Sender: FDA-Public Use
  Company Number: JP-PFIZER INC-2010019980

PATIENT
  Age: 3 Month
  Sex: Male

DRUGS (14)
  1. SILDENAFIL CITRATE [Suspect]
     Indication: PULMONARY ARTERIAL HYPERTENSION
     Dosage: .15 MG, 4X/DAY
     Route: 048
     Dates: start: 20080623
  2. FENTANYL [Concomitant]
     Route: 042
     Dates: end: 20080717
  3. MORPHINE HYDROCHLORIDE [Concomitant]
     Route: 042
     Dates: end: 20080725
  4. LASIX [Concomitant]
     Route: 042
     Dates: end: 20080718
  5. GASTER [Concomitant]
     Route: 042
  6. INOVAN [Concomitant]
     Route: 042
  7. BOSMIN [Concomitant]
     Route: 042
  8. HEPARIN SODIUM [Concomitant]
     Route: 042
     Dates: end: 20080725
  9. MILRILA [Concomitant]
     Route: 042
     Dates: end: 20080712
  10. ALBUMIN HUMAN [Concomitant]
     Route: 042
     Dates: end: 20080720
  11. BUMINATE [Concomitant]
     Route: 042
     Dates: end: 20080725
  12. ATROPINE SULFATE [Concomitant]
     Route: 042
  13. THYRADIN S [Concomitant]
     Route: 048
     Dates: end: 20080721
  14. FIRSTCIN [Concomitant]
     Route: 042
     Dates: end: 20080723

REACTIONS (1)
  - MULTI-ORGAN FAILURE [None]
